FAERS Safety Report 15969131 (Version 2)
Quarter: 2019Q3

REPORT INFORMATION
  Report Type: Spontaneous
  Country: US (occurrence: US)
  Receive Date: 20190215
  Receipt Date: 20190731
  Transmission Date: 20191004
  Serious: Yes (Other)
  Sender: FDA-Public Use
  Company Number: US-ASTRAZENECA-2019SE09714

PATIENT
  Age: 28139 Day
  Sex: Male

DRUGS (33)
  1. ZETIA [Concomitant]
     Active Substance: EZETIMIBE
  2. CLOPIDOGREL [Concomitant]
     Active Substance: CLOPIDOGREL BISULFATE
  3. HYDRALAZINE [Concomitant]
     Active Substance: HYDRALAZINE HYDROCHLORIDE
  4. PRILOSEC [Suspect]
     Active Substance: OMEPRAZOLE MAGNESIUM
     Dosage: FOR MULTIPLE AND VARIOUS YEARS.
     Route: 048
  5. SIMVASTATIN. [Concomitant]
     Active Substance: SIMVASTATIN
  6. LIPITOR [Concomitant]
     Active Substance: ATORVASTATIN CALCIUM
  7. BACLOFEN. [Concomitant]
     Active Substance: BACLOFEN
  8. PRILOSEC [Suspect]
     Active Substance: OMEPRAZOLE MAGNESIUM
     Route: 048
     Dates: start: 2003
  9. BESIFLOXACIN [Concomitant]
     Active Substance: BESIFLOXACIN
  10. MINOXIDIL. [Concomitant]
     Active Substance: MINOXIDIL
  11. CLONIDINE. [Concomitant]
     Active Substance: CLONIDINE
  12. CALCITROL [Concomitant]
  13. DOXYCYCLINE. [Concomitant]
     Active Substance: DOXYCYCLINE
  14. ZANTAC [Concomitant]
     Active Substance: RANITIDINE HYDROCHLORIDE
  15. LISINOPRIL. [Concomitant]
     Active Substance: LISINOPRIL
  16. ATENOLOL. [Concomitant]
     Active Substance: ATENOLOL
  17. ALLOPURINOL. [Concomitant]
     Active Substance: ALLOPURINOL
  18. AMOXICILLIN. [Concomitant]
     Active Substance: AMOXICILLIN
  19. AMLODIPINE [Concomitant]
     Active Substance: AMLODIPINE BESYLATE
  20. RENVELA [Concomitant]
     Active Substance: SEVELAMER CARBONATE
  21. PROTONIX [Suspect]
     Active Substance: PANTOPRAZOLE SODIUM
     Indication: ABDOMINAL PAIN UPPER
     Dosage: FOR MULTIPLE AND VARIOUS YEARS.
     Route: 065
  22. PROTONIX [Suspect]
     Active Substance: PANTOPRAZOLE SODIUM
     Indication: ABDOMINAL PAIN UPPER
     Route: 065
     Dates: start: 2003
  23. FLUOXETINE [Concomitant]
     Active Substance: FLUOXETINE HYDROCHLORIDE
  24. TOVIAZ [Concomitant]
     Active Substance: FESOTERODINE FUMARATE
  25. WARFARIN SODIUM. [Concomitant]
     Active Substance: WARFARIN SODIUM
  26. TAGAMET HB OTC [Concomitant]
  27. PROTONIX [Suspect]
     Active Substance: PANTOPRAZOLE SODIUM
     Indication: ABDOMINAL PAIN UPPER
     Route: 065
     Dates: start: 2010, end: 20160524
  28. CARBAMAZEPINE. [Concomitant]
     Active Substance: CARBAMAZEPINE
  29. COLCHICINE. [Concomitant]
     Active Substance: COLCHICINE
  30. ENOXAPARIN [Concomitant]
     Active Substance: ENOXAPARIN
  31. ERYTHROMYCIN. [Concomitant]
     Active Substance: ERYTHROMYCIN
  32. OXCARBAZEPINE. [Concomitant]
     Active Substance: OXCARBAZEPINE
  33. IBUPROFEN. [Concomitant]
     Active Substance: IBUPROFEN

REACTIONS (4)
  - Chronic kidney disease [Unknown]
  - Rebound acid hypersecretion [Unknown]
  - Renal failure [Not Recovered/Not Resolved]
  - Renal injury [Unknown]

NARRATIVE: CASE EVENT DATE: 20161215
